FAERS Safety Report 21488193 (Version 1)
Quarter: 2022Q4

REPORT INFORMATION
  Report Type: Spontaneous
  Country: US (occurrence: None)
  Receive Date: 20221020
  Receipt Date: 20221020
  Transmission Date: 20230113
  Serious: Yes (Hospitalization)
  Sender: FDA-Public Use
  Company Number: None

PATIENT
  Age: 57 Year
  Sex: Female

DRUGS (1)
  1. VERZENIO [Suspect]
     Active Substance: ABEMACICLIB
     Indication: Breast cancer
     Dosage: 150MG TWICE DAILY ORAL
     Route: 048
     Dates: start: 20220216

REACTIONS (9)
  - Atrial flutter [None]
  - Atrial fibrillation [None]
  - Diarrhoea [None]
  - Nausea [None]
  - Weight decreased [None]
  - Fatigue [None]
  - Chest discomfort [None]
  - Anxiety [None]
  - Ageusia [None]

NARRATIVE: CASE EVENT DATE: 20220829
